FAERS Safety Report 6663589-8 (Version None)
Quarter: 2010Q2

REPORT INFORMATION
  Report Type: 
  Country: None (occurrence: None)
  Receive Date: 20100401
  Receipt Date: 20100325
  Transmission Date: 20101027
  Serious: Yes (Death)
  Sender: FDA-Public Use
  Company Number: US-ROCHE-679229

PATIENT
  Sex: Female

DRUGS (1)
  1. CAPECITABINE [Suspect]
     Dosage: DOSING REGIMEN: TWO 150 MG TABLETS TWICE A DAY AND THREE 500 MG TABLETS TWICE A DAY; 7 DAYS ON/OFF
     Route: 048
     Dates: start: 20090818, end: 20091021

REACTIONS (2)
  - DEATH [None]
  - NAUSEA [None]
